FAERS Safety Report 23154307 (Version 1)
Quarter: 2023Q4

REPORT INFORMATION
  Report Type: Other
  Country: PK (occurrence: None)
  Receive Date: 20231107
  Receipt Date: 20231107
  Transmission Date: 20240110
  Serious: Yes (Other)
  Sender: FDA-Public Use
  Company Number: PK-ROCHE-3450491

PATIENT
  Age: 57 Year
  Sex: Female

DRUGS (2)
  1. HERCEPTIN [Suspect]
     Active Substance: TRASTUZUMAB
     Indication: Breast cancer
     Dosage: YES
     Route: 058
     Dates: start: 20220830
  2. PERJETA [Suspect]
     Active Substance: PERTUZUMAB
     Indication: Breast cancer
     Dosage: NO
     Route: 042
     Dates: start: 20220830, end: 20230918

REACTIONS (1)
  - Breast cancer metastatic [Unknown]
